FAERS Safety Report 16240575 (Version 1)
Quarter: 2019Q2

REPORT INFORMATION
  Report Type: Spontaneous
  Country: US (occurrence: US)
  Receive Date: 20190425
  Receipt Date: 20190425
  Transmission Date: 20190711
  Serious: Yes (Hospitalization, Other)
  Sender: FDA-Public Use
  Company Number: US-MYLANLABS-2019M1038339

PATIENT
  Age: 22 Month
  Sex: Female

DRUGS (1)
  1. METHADONE [Suspect]
     Active Substance: METHADONE HYDROCHLORIDE
     Indication: PRODUCT USED FOR UNKNOWN INDICATION
     Dosage: THE GIRL INGESTED AN UNKNOWN QUANTITY OF HER MOTHER^S LIQUID METHADONE.
     Route: 048

REACTIONS (6)
  - Accidental exposure to product [Recovering/Resolving]
  - Toxicity to various agents [Recovering/Resolving]
  - Somnolence [Recovered/Resolved]
  - Respiratory depression [Recovering/Resolving]
  - Miosis [Recovering/Resolving]
  - Accidental overdose [Recovering/Resolving]
